FAERS Safety Report 25726673 (Version 1)
Quarter: 2025Q3

REPORT INFORMATION
  Report Type: Spontaneous
  Country: AU (occurrence: AU)
  Receive Date: 20250826
  Receipt Date: 20250826
  Transmission Date: 20251021
  Serious: Yes (Life-Threatening, Hospitalization, Other)
  Sender: PFIZER
  Company Number: AU-PFIZER INC-PV202500100367

PATIENT
  Age: 16 Year
  Sex: Female

DRUGS (12)
  1. METHYLPREDNISOLONE [Suspect]
     Active Substance: METHYLPREDNISOLONE
     Indication: Prophylaxis against transplant rejection
  2. VECURONIUM [Suspect]
     Active Substance: VECURONIUM BROMIDE
     Indication: Hypotonia
     Route: 040
  3. VECURONIUM [Suspect]
     Active Substance: VECURONIUM BROMIDE
     Route: 040
  4. CYCLOSPORINE [Concomitant]
     Active Substance: CYCLOSPORINE
     Indication: Prophylaxis against transplant rejection
  5. AZATHIOPRINE [Concomitant]
     Active Substance: AZATHIOPRINE
     Indication: Prophylaxis against transplant rejection
  6. MUROMONAB-CD3 [Concomitant]
     Active Substance: MUROMONAB-CD3
     Indication: Prophylaxis against transplant rejection
  7. MORPHINE [Concomitant]
     Active Substance: MORPHINE
     Indication: Sedation
  8. MIDAZOLAM [Concomitant]
     Active Substance: MIDAZOLAM
     Indication: Sedation
  9. DOPAMINE [Concomitant]
     Active Substance: DOPAMINE HYDROCHLORIDE
     Indication: Hypotension
  10. VITAMIN K [Concomitant]
     Active Substance: PHYTONADIONE
     Indication: Electrolyte substitution therapy
  11. CEFOTAXIME [Concomitant]
     Active Substance: CEFOTAXIME SODIUM
  12. AMPHOTERICIN B [Concomitant]
     Active Substance: AMPHOTERICIN B

REACTIONS (2)
  - Necrotising myositis [Recovered/Resolved]
  - Off label use [Unknown]
